FAERS Safety Report 7464879-1 (Version None)
Quarter: 2011Q2

REPORT INFORMATION
  Report Type: 
  Country: None (occurrence: None)
  Receive Date: 20110509
  Receipt Date: 20081021
  Transmission Date: 20111010
  Serious: Yes (Death, Other)
  Sender: FDA-Public Use
  Company Number: US-BAYER-200837461NA

PATIENT
  Age: 70 Year
  Sex: Female
  Weight: 69.388 kg

DRUGS (16)
  1. COUMADIN [Concomitant]
     Dosage: 5 MG, QD
     Dates: start: 20060811
  2. ASPIRIN [Concomitant]
     Dosage: 81 MG, QD
  3. MICRO-K [Concomitant]
     Dosage: 10 THREE TIMES A WEEK
     Dates: start: 20060817
  4. HEPARIN [Concomitant]
     Dosage: UNK
     Dates: start: 20060913, end: 20060916
  5. BACTRIM DS [Concomitant]
     Dosage: 1 TWICE DAILY
     Dates: start: 20060912
  6. BUMETANIDE [Concomitant]
     Dosage: 0.5MG THREE TIMES A WEEK
     Dates: start: 20060817
  7. HYDROCHLOROTHIAZIDE [Concomitant]
     Dosage: 12.5 DAILY
     Dates: start: 20050117, end: 20060815
  8. ALLOPURINOL [Concomitant]
     Dosage: 600MG PRE-OP
     Route: 048
     Dates: start: 20060813
  9. VISIPAQUE [IODINE,IODIXANOL] [Concomitant]
     Dosage: 5CC
  10. ARGATROBAN [Concomitant]
  11. TRASYLOL [Suspect]
     Indication: INTRA-AORTIC BALLOON PLACEMENT
     Dosage: 50 ML / HR
  12. TOPROL-XL [Concomitant]
     Indication: HYPERTENSION
     Dosage: 50 MG, QD
     Dates: start: 20010112, end: 20060822
  13. VANCOMYCIN [Concomitant]
     Dosage: 2 GRAM NORMAL SALINE 250ML
     Route: 042
     Dates: start: 20060913
  14. INSULIN [Concomitant]
     Dosage: 5 UNITS THEN 3 UNITS/HR
     Route: 042
  15. ZINACEF [Concomitant]
     Dosage: 1.5 GRAM
     Route: 042
     Dates: start: 20060913
  16. TRASYLOL [Suspect]
     Indication: MITRAL VALVE REPAIR
     Dosage: 200 ML VIA CARDIOPULMONARY BYPASS PRIME.
     Dates: start: 20060913, end: 20060913

REACTIONS (11)
  - CEREBROVASCULAR ACCIDENT [None]
  - PAIN [None]
  - DEATH [None]
  - ANHEDONIA [None]
  - INJURY [None]
  - RENAL FAILURE [None]
  - UNEVALUABLE EVENT [None]
  - ANXIETY [None]
  - FEAR [None]
  - MULTI-ORGAN FAILURE [None]
  - STRESS [None]
